FAERS Safety Report 4398194-X (Version None)
Quarter: 2004Q3

REPORT INFORMATION
  Report Type: 
  Country: None (occurrence: None)
  Receive Date: 20040713
  Receipt Date: 20040629
  Transmission Date: 20050211
  Serious: Yes (Death, Hospitalization)
  Sender: FDA-Public Use
  Company Number: EMADSS2002007644

PATIENT
  Age: 75 Year
  Sex: Female

DRUGS (8)
  1. REMICADE [Suspect]
     Indication: RHEUMATOID ARTHRITIS
     Dosage: SEE IMAGE
     Route: 041
     Dates: start: 20020906, end: 20020906
  2. REMICADE [Suspect]
     Indication: RHEUMATOID ARTHRITIS
     Dosage: SEE IMAGE
     Route: 041
     Dates: start: 20021001, end: 20021001
  3. AZITHRIOPRINE (AZATHIOPRINE) UNSPECIFIED [Concomitant]
  4. PREDNISOLONE [Concomitant]
  5. CO-AMILOFRUSE (FRUMIL) UNSPECIFIED [Concomitant]
  6. SOTALOL HCL [Concomitant]
  7. FOSAMX (ALENDORNTE SODIUM) UNSPECIFIED [Concomitant]
  8. FOXAMAX (ALENDORNATE SODIUM) UNSPECIFIED [Concomitant]

REACTIONS (6)
  - ALVEOLITIS FIBROSING [None]
  - BRONCHIECTASIS [None]
  - PNEUMOCYSTIS CARINII PNEUMONIA [None]
  - PNEUMONIA [None]
  - RESPIRATORY FAILURE [None]
  - THERAPY NON-RESPONDER [None]
